FAERS Safety Report 8157593-0 (Version None)
Quarter: 2012Q1

REPORT INFORMATION
  Report Type: 
  Country: None (occurrence: None)
  Receive Date: 20120222
  Receipt Date: 20110824
  Transmission Date: 20120608
  Serious: No
  Sender: FDA-Public Use
  Company Number: US-ASTRAZENECA-2010SE42209

PATIENT
  Sex: Female

DRUGS (2)
  1. ATENOLOL [Suspect]
     Route: 065
  2. SYMBICORT [Concomitant]
     Dosage: 160/4.5 MCG TWO PUFFS TWICE DAILY
     Route: 055

REACTIONS (3)
  - DRUG HYPERSENSITIVITY [None]
  - DRUG INTOLERANCE [None]
  - DYSPNOEA [None]
